FAERS Safety Report 25916669 (Version 1)
Quarter: 2025Q4

REPORT INFORMATION
  Report Type: Spontaneous
  Country: US (occurrence: US)
  Receive Date: 20251014
  Receipt Date: 20251014
  Transmission Date: 20260117
  Serious: No
  Sender: PRINSTON PHARMACEUTICAL
  Company Number: US-PRINSTON PHARMACEUTICAL INC.-2024PRN00383

PATIENT
  Sex: Female

DRUGS (2)
  1. ESCITALOPRAM [Suspect]
     Active Substance: ESCITALOPRAM OXALATE
     Dosage: UNK
     Dates: start: 20241007, end: 202410
  2. ESCITALOPRAM [Suspect]
     Active Substance: ESCITALOPRAM OXALATE
     Dosage: BACK DOWN THE DOSE
     Dates: start: 202410, end: 20241012

REACTIONS (8)
  - Nausea [Unknown]
  - Vomiting [Unknown]
  - Headache [Unknown]
  - Suspected product quality issue [Unknown]
  - Diarrhoea [Unknown]
  - Heart rate increased [Unknown]
  - Epistaxis [Unknown]
  - Dizziness [Unknown]

NARRATIVE: CASE EVENT DATE: 20240101
